FAERS Safety Report 5446406-3 (Version None)
Quarter: 2007Q3

REPORT INFORMATION
  Report Type: 
  Country: None (occurrence: None)
  Receive Date: 20070907
  Receipt Date: 20070830
  Transmission Date: 20080115
  Serious: Yes (Life-Threatening, Hospitalization)
  Sender: FDA-Public Use
  Company Number: US-ROCHE-514710

PATIENT
  Age: 42 Year
  Sex: Female
  Weight: 82.1 kg

DRUGS (2)
  1. PEG-INTERFERON A-2A (RO 25-8310) [Suspect]
     Route: 058
     Dates: start: 20060210, end: 20070112
  2. RIBAVIRIN [Suspect]
     Route: 048
     Dates: start: 20060210, end: 20070112

REACTIONS (1)
  - BRAIN NEOPLASM [None]
